FAERS Safety Report 10174556 (Version 5)
Quarter: 2014Q3

REPORT INFORMATION
  Report Type: Report from Study
  Country: DE (occurrence: DE)
  Receive Date: 20140515
  Receipt Date: 20140710
  Transmission Date: 20150326
  Serious: Yes (Death)
  Sender: FDA-Public Use
  Company Number: PHHY2014DE058788

PATIENT
  Sex: Male
  Weight: 76 kg

DRUGS (5)
  1. SALBUTAMOL CT [Concomitant]
     Dates: start: 20040601
  2. ACCUZIDE [Concomitant]
     Active Substance: HYDROCHLOROTHIAZIDE\QUINAPRIL HYDROCHLORIDE
  3. DIGIMERCK [Concomitant]
     Active Substance: DIGITOXIN
  4. ULTIBRO BREEZHALER [Suspect]
     Active Substance: GLYCOPYRRONIUM\INDACATEROL
     Indication: CHRONIC OBSTRUCTIVE PULMONARY DISEASE
     Dosage: 1 DF, QD
     Route: 055
     Dates: start: 20140113
  5. ULTIBRO BREEZHALER [Suspect]
     Active Substance: GLYCOPYRRONIUM\INDACATEROL

REACTIONS (2)
  - Orthopnoea [Fatal]
  - Cardiac failure [Fatal]

NARRATIVE: CASE EVENT DATE: 20140416
